FAERS Safety Report 8427883-2 (Version None)
Quarter: 2012Q2

REPORT INFORMATION
  Report Type: 
  Country: None (occurrence: None)
  Receive Date: 20120611
  Receipt Date: 20120605
  Transmission Date: 20120825
  Serious: Yes (Hospitalization, Other)
  Sender: FDA-Public Use
  Company Number: FI-ROCHE-1058704

PATIENT
  Sex: Female

DRUGS (12)
  1. LEVOTHYROXINE SODIUM [Concomitant]
     Route: 048
  2. CALCICHEW D3 [Concomitant]
     Route: 048
  3. CITALOPRAM HYDROBROMIDE [Concomitant]
     Route: 048
  4. SPIRIVA RESPIMAT [Concomitant]
     Route: 055
  5. AVASTIN [Suspect]
     Indication: AGE-RELATED MACULAR DEGENERATION
     Dosage: AVASTIN 25 MG/ML CONCENTRATE FOR SOLUTION FOR INFUSION
     Route: 050
     Dates: start: 20120224, end: 20120224
  6. FUROSEMIDE [Concomitant]
     Route: 048
  7. PREDNISOLONE [Concomitant]
     Route: 048
  8. OFTAQUIX [Concomitant]
     Dosage: 1X6
     Route: 047
     Dates: start: 20120223, end: 20120227
  9. SIMVASTATIN [Concomitant]
     Route: 048
  10. DIFORMIN RETARD [Concomitant]
     Route: 048
  11. ZOLEDRONOC ACID [Concomitant]
     Route: 042
  12. ENALAPRIL MALEATE [Concomitant]
     Dosage: ENALAPRIL KRKA
     Route: 048

REACTIONS (2)
  - TRANSMISSION OF AN INFECTIOUS AGENT VIA A MEDICINAL PRODUCT [None]
  - ENDOPHTHALMITIS [None]
